FAERS Safety Report 12444418 (Version 1)
Quarter: 2016Q2

REPORT INFORMATION
  Report Type: Spontaneous
  Country: AU (occurrence: AU)
  Receive Date: 20160607
  Receipt Date: 20160607
  Transmission Date: 20160815
  Serious: Yes (Hospitalization)
  Sender: FDA-Public Use
  Company Number: AU-CELGENEUS-AUS-2015060348

PATIENT
  Age: 68 Year
  Sex: Male
  Weight: 72.6 kg

DRUGS (1)
  1. AZACITIDINE. [Suspect]
     Active Substance: AZACITIDINE
     Indication: MYELODYSPLASTIC SYNDROME
     Route: 065

REACTIONS (1)
  - Febrile nonhaemolytic transfusion reaction [Recovered/Resolved with Sequelae]

NARRATIVE: CASE EVENT DATE: 20150518
